FAERS Safety Report 15034822 (Version 1)
Quarter: 2018Q2

REPORT INFORMATION
  Report Type: Report from Study
  Country: CO (occurrence: CO)
  Receive Date: 20180620
  Receipt Date: 20180620
  Transmission Date: 20180711
  Serious: Yes (Other)
  Sender: FDA-Public Use
  Company Number: CO-AMGEN-COLSL2018064218

PATIENT
  Age: 69 Year
  Sex: Male

DRUGS (1)
  1. VECTIBIX [Suspect]
     Active Substance: PANITUMUMAB
     Indication: COLORECTAL CANCER METASTATIC
     Dosage: 380 MG, Q2WK
     Route: 042
     Dates: start: 20160831, end: 20180328

REACTIONS (4)
  - Dry skin [Not Recovered/Not Resolved]
  - Abdominal cavity drainage [Unknown]
  - Gastritis [Not Recovered/Not Resolved]
  - Oedema peripheral [Not Recovered/Not Resolved]
